FAERS Safety Report 6075873-X (Version None)
Quarter: 2009Q1

REPORT INFORMATION
  Report Type: 
  Country: None (occurrence: None)
  Receive Date: 20090210
  Receipt Date: 20071012
  Transmission Date: 20090719
  Serious: Yes (Disabling)
  Sender: FDA-Public Use
  Company Number: 2007-165717-NL

PATIENT
  Age: 26 Year
  Sex: Female

DRUGS (1)
  1. ETONOGESTREL (BATCH #: 851834/887285) [Suspect]
     Indication: CONTRACEPTION
     Dosage: DF, SUBDERMAL
     Route: 059
     Dates: start: 20070220, end: 20070919

REACTIONS (9)
  - BACK PAIN [None]
  - CHEST PAIN [None]
  - DIZZINESS [None]
  - DYSPNOEA [None]
  - MIGRAINE [None]
  - MUSCULOSKELETAL PAIN [None]
  - NAUSEA [None]
  - PALPITATIONS [None]
  - VAGINAL HAEMORRHAGE [None]
